FAERS Safety Report 10210952 (Version 1)
Quarter: 2014Q2

REPORT INFORMATION
  Report Type: Spontaneous
  Country: US (occurrence: None)
  Receive Date: 20140530
  Receipt Date: 20140530
  Transmission Date: 20141212
  Serious: Yes (Hospitalization)
  Sender: FDA-Public Use
  Company Number: None

PATIENT
  Age: 82 Year
  Sex: Female
  Weight: 72.58 kg

DRUGS (4)
  1. LEVOFLOXACIN [Suspect]
     Indication: BRONCHITIS
     Dosage: BY MOUTH
     Dates: start: 20140228
  2. MELOXICAN [Concomitant]
  3. VITAMIN C [Concomitant]
  4. VITAMIN D [Concomitant]

REACTIONS (11)
  - Headache [None]
  - Dizziness [None]
  - Chest pain [None]
  - Arthralgia [None]
  - Rash [None]
  - Hypertension [None]
  - Nausea [None]
  - Tremor [None]
  - Palpitations [None]
  - Pain in extremity [None]
  - Neck pain [None]
